FAERS Safety Report 7864962-2 (Version None)
Quarter: 2011Q4

REPORT INFORMATION
  Report Type: 
  Country: None (occurrence: None)
  Receive Date: 20111028
  Receipt Date: 20100924
  Transmission Date: 20120403
  Serious: No
  Sender: FDA-Public Use
  Company Number: US-GLAXOSMITHKLINE-A0883222A

PATIENT
  Age: 81 Year
  Sex: Female

DRUGS (15)
  1. AVAPRO [Concomitant]
  2. LOTREL [Concomitant]
  3. ESTRADIOL [Concomitant]
  4. VITAMIN B-12 [Concomitant]
  5. LOVAZA [Concomitant]
  6. TYLENOL-500 [Concomitant]
  7. ADVAIR DISKUS 100/50 [Suspect]
     Indication: CHRONIC OBSTRUCTIVE PULMONARY DISEASE
     Dosage: 1PUFF TWICE PER DAY
     Route: 055
     Dates: start: 20100806
  8. VITAMIN E [Concomitant]
  9. CALCIUM CARBONATE [Concomitant]
  10. ASCORBIC ACID [Concomitant]
  11. ASPIRIN [Concomitant]
  12. SYNTHROID [Concomitant]
  13. CYMBALTA [Concomitant]
  14. MULTI-VITAMINS [Concomitant]
  15. CPAP MACHINE [Concomitant]

REACTIONS (3)
  - COUGH [None]
  - DYSPHONIA [None]
  - PRODUCT QUALITY ISSUE [None]
